FAERS Safety Report 17756819 (Version 1)
Quarter: 2020Q2

REPORT INFORMATION
  Report Type: Spontaneous
  Country: CH (occurrence: CH)
  Receive Date: 20200507
  Receipt Date: 20200507
  Transmission Date: 20200714
  Serious: Yes (Life-Threatening, Hospitalization, Other)
  Sender: FDA-Public Use
  Company Number: CH-PFIZER INC-2020178789

PATIENT
  Age: 53 Year
  Sex: Female

DRUGS (3)
  1. TEMESTA (LORAZEPAM) [Suspect]
     Active Substance: LORAZEPAM
     Dosage: PRESUMABLY CONTINUOUS INCREASED INTAKE
     Route: 048
     Dates: start: 20180502, end: 20180505
  2. DAFALGAN [Suspect]
     Active Substance: ACETAMINOPHEN
     Dosage: PRESUMABLY CONTINUOUS INCREASED INTAKE
     Route: 048
     Dates: start: 20180502, end: 20180505
  3. ITINEROL [Suspect]
     Active Substance: CAFFEINE\MECLIZINE MONOHYDROCHLORIDE\PYRIDOXINE HYDROCHLORIDE
     Dosage: PRESUMABLY CONTINUOUS INCREASED INTAKE
     Route: 048
     Dates: start: 20180502, end: 20180505

REACTIONS (6)
  - Aspartate aminotransferase increased [Unknown]
  - Somnolence [Recovered/Resolved]
  - Alanine aminotransferase increased [Recovering/Resolving]
  - Drug abuse [Unknown]
  - Poisoning [Recovered/Resolved]
  - Suicidal ideation [Unknown]

NARRATIVE: CASE EVENT DATE: 20180502
